FAERS Safety Report 15122786 (Version 1)
Quarter: 2018Q3

REPORT INFORMATION
  Report Type: Report from Study
  Country: US (occurrence: US)
  Receive Date: 20180709
  Receipt Date: 20180709
  Transmission Date: 20181010
  Serious: No
  Sender: FDA-Public Use
  Company Number: PHEH2018US026926

PATIENT
  Sex: Female

DRUGS (1)
  1. ENTRESTO [Suspect]
     Active Substance: SACUBITRIL\VALSARTAN
     Indication: PRODUCT USED FOR UNKNOWN INDICATION
     Route: 065

REACTIONS (11)
  - Choking sensation [Unknown]
  - Musculoskeletal stiffness [Unknown]
  - Cardiomegaly [Unknown]
  - Speech disorder [Unknown]
  - Hypoaesthesia [Unknown]
  - Neuralgia [Unknown]
  - Neck pain [Unknown]
  - Oral disorder [Unknown]
  - Trigeminal neuralgia [Unknown]
  - Dyspnoea [Unknown]
  - Fibromyalgia [Unknown]
